FAERS Safety Report 23810674 (Version 1)
Quarter: 2024Q2

REPORT INFORMATION
  Report Type: Spontaneous
  Country: US (occurrence: US)
  Receive Date: 20240502
  Receipt Date: 20240502
  Transmission Date: 20240715
  Serious: No
  Sender: FDA-Public Use
  Company Number: US-BRISTOL-MYERS SQUIBB COMPANY-2023-179140

PATIENT
  Age: 80 Year
  Sex: Female
  Weight: 65.32 kg

DRUGS (3)
  1. ELIQUIS [Suspect]
     Active Substance: APIXABAN
     Indication: Atrial fibrillation
     Route: 048
     Dates: start: 20231207
  2. FLECAINIDE [Suspect]
     Active Substance: FLECAINIDE
     Indication: Product used for unknown indication
     Route: 048
     Dates: start: 20231207
  3. FLECAINIDE [Suspect]
     Active Substance: FLECAINIDE
     Dosage: 1/2 TABLET
     Route: 048
     Dates: start: 20231207

REACTIONS (6)
  - Epistaxis [Unknown]
  - Gingival bleeding [Unknown]
  - Ocular hyperaemia [Unknown]
  - Asthenia [Unknown]
  - Dyspnoea [Unknown]
  - Gait inability [Unknown]
